FAERS Safety Report 25346654 (Version 4)
Quarter: 2025Q2

REPORT INFORMATION
  Report Type: Spontaneous
  Country: AU (occurrence: AU)
  Receive Date: 20250522
  Receipt Date: 20250624
  Transmission Date: 20250717
  Serious: Yes (Other)
  Sender: PFIZER
  Company Number: AU-PFIZER INC-202500104518

PATIENT
  Sex: Male
  Weight: 24 kg

DRUGS (2)
  1. BICILLIN L-A [Suspect]
     Active Substance: PENICILLIN G BENZATHINE
     Indication: Rheumatic fever
     Route: 030
     Dates: start: 20230519
  2. BICILLIN L-A [Suspect]
     Active Substance: PENICILLIN G BENZATHINE
     Indication: Rheumatic heart disease
     Dates: start: 202408

REACTIONS (4)
  - Rheumatic fever [Unknown]
  - Disease recurrence [Unknown]
  - Off label use [Unknown]
  - Product storage error [Unknown]

NARRATIVE: CASE EVENT DATE: 20250310
